FAERS Safety Report 9475664 (Version 2)
Quarter: 2015Q1

REPORT INFORMATION
  Report Type: Report from Study
  Country: US (occurrence: US)
  Receive Date: 20130826
  Receipt Date: 20150205
  Transmission Date: 20150721
  Serious: Yes (Hospitalization)
  Sender: FDA-Public Use
  Company Number: PHEH2013US017971

PATIENT
  Sex: Female

DRUGS (1)
  1. GILENYA [Suspect]
     Active Substance: FINGOLIMOD HYDROCHLORIDE
     Indication: MULTIPLE SCLEROSIS
     Dosage: 0.5 MG, QD
     Route: 048

REACTIONS (18)
  - Hiatus hernia [Not Recovered/Not Resolved]
  - Blood pressure increased [Unknown]
  - Insomnia [Unknown]
  - Sleep disorder [Unknown]
  - Decreased appetite [Unknown]
  - Aortic aneurysm [Not Recovered/Not Resolved]
  - Protein total decreased [Unknown]
  - Arthralgia [Not Recovered/Not Resolved]
  - Weight decreased [Unknown]
  - Blood potassium decreased [Unknown]
  - Nausea [Unknown]
  - Osteopenia [Unknown]
  - Gait disturbance [Unknown]
  - Osteoarthritis [Unknown]
  - Rash [Recovering/Resolving]
  - Chest pain [Unknown]
  - Central nervous system lesion [Unknown]
  - Groin pain [Recovered/Resolved]

NARRATIVE: CASE EVENT DATE: 2013
